FAERS Safety Report 22524927 (Version 1)
Quarter: 2023Q2

REPORT INFORMATION
  Report Type: Other
  Country: US (occurrence: None)
  Receive Date: 20230606
  Receipt Date: 20230606
  Transmission Date: 20230721
  Serious: Yes (Other)
  Sender: FDA-Public Use
  Company Number: US-ROCHE-3361284

PATIENT
  Age: 62 Year
  Sex: Female

DRUGS (1)
  1. ALECENSA [Suspect]
     Active Substance: ALECTINIB HYDROCHLORIDE
     Indication: Neoplasm
     Dosage: TAKE 2 CAPSULE(S) BY MOUTH TWICE A DAY. THE MAXIMUM DAILY DOSE IS 600MG
     Route: 048

REACTIONS (2)
  - Brain neoplasm malignant [Unknown]
  - Off label use [Unknown]
